FAERS Safety Report 6649478-3 (Version None)
Quarter: 2010Q1

REPORT INFORMATION
  Report Type: 
  Country: None (occurrence: None)
  Receive Date: 20100324
  Receipt Date: 20100324
  Transmission Date: 20100710
  Serious: No
  Sender: FDA-Public Use
  Company Number: None

PATIENT

DRUGS (2)
  1. LORCET-HD [Suspect]
     Dosage: 1-2 Q4-6 PO
     Route: 048
  2. LEVACET [Suspect]
     Dosage: 1-2 Q4-6 PO
     Route: 048

REACTIONS (3)
  - CIRCUMSTANCE OR INFORMATION CAPABLE OF LEADING TO MEDICATION ERROR [None]
  - DRUG NAME CONFUSION [None]
  - MEDICATION ERROR [None]
